FAERS Safety Report 18200267 (Version 1)
Quarter: 2020Q3

REPORT INFORMATION
  Report Type: Spontaneous
  Country: US (occurrence: US)
  Receive Date: 20200827
  Receipt Date: 20200827
  Transmission Date: 20201103
  Serious: No
  Sender: FDA-Public Use
  Company Number: US-HIKMA PHARMACEUTICALS USA INC.-US-H14001-20-02954

PATIENT
  Sex: Female
  Weight: 95.25 kg

DRUGS (7)
  1. METHOTREXATE TABLET [Suspect]
     Active Substance: METHOTREXATE
     Indication: PSORIASIS
     Route: 065
  2. METHOTREXATE TABLET [Suspect]
     Active Substance: METHOTREXATE
     Indication: ARTHRITIS
  3. XELJANZ XR [Suspect]
     Active Substance: TOFACITINIB CITRATE
     Indication: PSORIASIS
  4. METHOTREXATE INJECTION [Suspect]
     Active Substance: METHOTREXATE
     Indication: PSORIASIS
     Route: 065
  5. METHOTREXATE INJECTION [Suspect]
     Active Substance: METHOTREXATE
     Indication: ARTHRITIS
  6. PREDNISONE. [Suspect]
     Active Substance: PREDNISONE
     Indication: PRODUCT USED FOR UNKNOWN INDICATION
     Route: 065
     Dates: start: 202003
  7. XELJANZ XR [Suspect]
     Active Substance: TOFACITINIB CITRATE
     Indication: ARTHRITIS
     Route: 048
     Dates: start: 2019, end: 202003

REACTIONS (5)
  - Arthralgia [Unknown]
  - Anaemia [Unknown]
  - Gait inability [Unknown]
  - Drug ineffective [Unknown]
  - Weight increased [Unknown]
